FAERS Safety Report 10634463 (Version 3)
Quarter: 2015Q1

REPORT INFORMATION
  Report Type: Spontaneous
  Country: US (occurrence: US)
  Receive Date: 20141205
  Receipt Date: 20150316
  Transmission Date: 20150720
  Serious: No
  Sender: FDA-Public Use
  Company Number: US-ASTELLAS-2014US015248

PATIENT
  Sex: Male

DRUGS (1)
  1. XTANDI [Suspect]
     Active Substance: ENZALUTAMIDE
     Indication: PROSTATE CANCER METASTATIC
     Dosage: 4 CAPSULES, ONCE A DAY
     Route: 065
     Dates: start: 2014

REACTIONS (10)
  - Fatigue [Unknown]
  - Bone pain [Unknown]
  - Amnesia [Unknown]
  - Myalgia [Unknown]
  - Decreased appetite [Unknown]
  - Diarrhoea [Unknown]
  - Asthenia [Unknown]
  - Constipation [Unknown]
  - Weight decreased [Unknown]
  - Back pain [Unknown]
